FAERS Safety Report 21216335 (Version 1)
Quarter: 2022Q3

REPORT INFORMATION
  Report Type: Spontaneous
  Country: US (occurrence: US)
  Receive Date: 20220816
  Receipt Date: 20220816
  Transmission Date: 20221027
  Serious: Yes (Other)
  Sender: FDA-Public Use
  Company Number: US-PERRIGO-22US010725

PATIENT
  Age: 23 Year
  Sex: Male
  Weight: 99.773 kg

DRUGS (3)
  1. BURTS BEES THROAT SOOTHING [Suspect]
     Active Substance: PECTIN
     Indication: Oropharyngeal pain
     Dosage: 1 SOOTHING POP, SINGLE
     Route: 048
     Dates: start: 20220804, end: 20220804
  2. CLARITIN [Concomitant]
     Active Substance: LORATADINE
     Indication: Hypersensitivity
     Dosage: UNKNOWN, UNKNOWN
     Route: 065
  3. VITAMINS [Concomitant]
     Active Substance: VITAMINS
     Indication: Supplementation therapy
     Dosage: UNKNOWN, UNKNOWN
     Route: 065

REACTIONS (1)
  - Choking [Recovered/Resolved]

NARRATIVE: CASE EVENT DATE: 20220804
